FAERS Safety Report 6183369-X (Version None)
Quarter: 2009Q2

REPORT INFORMATION
  Report Type: 
  Country: None (occurrence: None)
  Receive Date: 20090506
  Receipt Date: 20040928
  Transmission Date: 20091009
  Serious: Yes (Hospitalization)
  Sender: FDA-Public Use
  Company Number: 2009EU001680

PATIENT
  Age: 38 Year
  Sex: Female

DRUGS (6)
  1. TACROLIMUS [Suspect]
     Indication: IMMUNOSUPPRESSION
     Dosage: 4 MG,  /D;  6 MG,  /D, ORAL
     Route: 048
  2. CYCLOSPORINE [Concomitant]
  3. PREDNISONE TAB [Concomitant]
  4. MYCOPHENOLATE MOFETIL [Concomitant]
  5. DACLIZUMAB (DACLIZUMAB) [Concomitant]
  6. METHYLPREDNISOLONE 16MG TAB [Concomitant]

REACTIONS (7)
  - ASTHENIA [None]
  - BLOOD PRESSURE INCREASED [None]
  - GRAFT COMPLICATION [None]
  - HAEMOLYTIC URAEMIC SYNDROME [None]
  - MICROANGIOPATHIC HAEMOLYTIC ANAEMIA [None]
  - RENAL ARTERY THROMBOSIS [None]
  - THROMBOTIC MICROANGIOPATHY [None]
